FAERS Safety Report 5486475-8 (Version None)
Quarter: 2007Q4

REPORT INFORMATION
  Report Type: 
  Country: None (occurrence: None)
  Receive Date: 20071016
  Receipt Date: 20071004
  Transmission Date: 20080405
  Serious: Yes (Death)
  Sender: FDA-Public Use
  Company Number: B0489934B

PATIENT

DRUGS (1)
  1. AUGMENTIN '125' [Suspect]
     Indication: PROPHYLAXIS
     Dosage: 1.2G UNKNOWN
     Dates: start: 20071003

REACTIONS (2)
  - DEATH [None]
  - DRUG EXPOSURE DURING PREGNANCY [None]
